FAERS Safety Report 8044137-7 (Version None)
Quarter: 2012Q1

REPORT INFORMATION
  Report Type: 
  Country: None (occurrence: None)
  Receive Date: 20120113
  Receipt Date: 20120112
  Transmission Date: 20120608
  Serious: Yes (Life-Threatening, Hospitalization, Other)
  Sender: FDA-Public Use
  Company Number: PHHY2011ES112594

PATIENT
  Age: 75 Year
  Sex: Female

DRUGS (7)
  1. ROSUVASTATIN [Concomitant]
     Indication: BLOOD CHOLESTEROL INCREASED
  2. METHOTREXATE [Concomitant]
     Indication: RHEUMATOID ARTHRITIS
     Route: 048
  3. PREDNISONE [Concomitant]
     Dosage: 5 MG, QD
     Route: 048
  4. LYRICA [Concomitant]
  5. RASILEZ HCT [Suspect]
     Indication: HYPERTENSION
     Dosage: 1 DF (300 MG ALISKI AND 12.5 MG HYDRO), DAILY
     Route: 048
     Dates: start: 20100501
  6. NAPROSYN [Concomitant]
  7. METFORMIN HYDROCHLORIDE [Suspect]
     Indication: TYPE 2 DIABETES MELLITUS
     Dosage: UNK,

REACTIONS (7)
  - COMA [None]
  - RESPIRATORY TRACT INFECTION [None]
  - INTRAVENTRICULAR HAEMORRHAGE [None]
  - HAEMORRHAGIC STROKE [None]
  - PYREXIA [None]
  - CENTRAL NERVOUS SYSTEM INFECTION [None]
  - HYDROCELE [None]
